FAERS Safety Report 6399070-3 (Version None)
Quarter: 2009Q4

REPORT INFORMATION
  Report Type: 
  Country: None (occurrence: None)
  Receive Date: 20091013
  Receipt Date: 20091005
  Transmission Date: 20100525
  Serious: Yes (Hospitalization)
  Sender: FDA-Public Use
  Company Number: US-GENENTECH-292129

PATIENT
  Sex: Female

DRUGS (6)
  1. TRASTUZUMAB [Suspect]
     Indication: BREAST CANCER
     Dosage: 373.8 MG, Q3W
     Route: 042
     Dates: start: 20090213
  2. BEVACIZUMAB [Suspect]
     Indication: BREAST CANCER
     Dosage: 934.5 MG, Q3W
     Route: 042
     Dates: start: 20090213
  3. CARBOPLATIN [Suspect]
     Indication: BREAST CANCER
     Dosage: 683 MG, Q3W
     Route: 042
     Dates: start: 20090213
  4. DOCETAXEL [Suspect]
     Indication: BREAST CANCER
     Dosage: 125 MG, Q3W
     Route: 042
     Dates: start: 20090213
  5. TAMOXIFEN CITRATE [Concomitant]
     Indication: DRUG USE FOR UNKNOWN INDICATION
     Dosage: UNK
     Dates: start: 20090623
  6. ASPIRIN [Concomitant]
     Indication: DRUG USE FOR UNKNOWN INDICATION
     Dosage: UNK

REACTIONS (1)
  - SUPRAVENTRICULAR TACHYCARDIA [None]
